FAERS Safety Report 16793438 (Version 2)
Quarter: 2019Q3

REPORT INFORMATION
  Report Type: Report from Study
  Country: US (occurrence: US)
  Receive Date: 20190911
  Receipt Date: 20190920
  Transmission Date: 20191005
  Serious: No
  Sender: FDA-Public Use
  Company Number: PHEH2019US037096

PATIENT
  Age: 54 Year
  Sex: Female

DRUGS (2)
  1. COSENTYX [Suspect]
     Active Substance: SECUKINUMAB
     Indication: PSORIASIS
     Dosage: 150 MG, QW
     Route: 058
     Dates: start: 20190828
  2. COSENTYX [Suspect]
     Active Substance: SECUKINUMAB
     Dosage: 150 MG, QW
     Route: 058
     Dates: start: 20190904

REACTIONS (7)
  - Rash [Unknown]
  - Herpes simplex [Recovered/Resolved]
  - Malaise [Unknown]
  - Stress [Unknown]
  - Drug ineffective [Unknown]
  - Ear infection [Recovering/Resolving]
  - Incorrect dose administered [Unknown]

NARRATIVE: CASE EVENT DATE: 20190828
